FAERS Safety Report 13042020 (Version 1)
Quarter: 2016Q4

REPORT INFORMATION
  Report Type: Spontaneous
  Country: GB (occurrence: GB)
  Receive Date: 20161219
  Receipt Date: 20161219
  Transmission Date: 20170207
  Serious: Yes (Other)
  Sender: FDA-Public Use
  Company Number: GB-TAKEDA-2016TUS022348

PATIENT
  Age: 26 Year
  Sex: Female

DRUGS (1)
  1. ENTYVIO [Suspect]
     Active Substance: VEDOLIZUMAB
     Indication: INFLAMMATORY BOWEL DISEASE
     Dosage: UNK MG, UNK
     Route: 065
     Dates: start: 201506, end: 201512

REACTIONS (3)
  - Foetal death [Unknown]
  - Autoimmune hepatitis [Unknown]
  - Pregnancy [Unknown]
